FAERS Safety Report 10027335 (Version 1)
Quarter: 2014Q1

REPORT INFORMATION
  Report Type: Report from Study
  Country: BR (occurrence: BR)
  Receive Date: 20140321
  Receipt Date: 20140321
  Transmission Date: 20141002
  Serious: Yes (Other)
  Sender: FDA-Public Use
  Company Number: PHHY2014BR032923

PATIENT
  Age: 29 Year
  Sex: Female
  Weight: 65 kg

DRUGS (3)
  1. EXJADE [Suspect]
     Indication: SICKLE CELL ANAEMIA
     Dosage: 2 DF, DAILY
     Route: 048
     Dates: start: 201309, end: 201311
  2. EXJADE [Suspect]
     Indication: IRON OVERLOAD
  3. FOLIC ACID [Suspect]
     Indication: SICKLE CELL ANAEMIA
     Dosage: 1 TABLET, 3 TIMES A WEEKS
     Route: 048

REACTIONS (3)
  - Abortion spontaneous [Unknown]
  - Serum ferritin increased [Unknown]
  - Maternal exposure during pregnancy [Unknown]
